FAERS Safety Report 4559231-2 (Version None)
Quarter: 2005Q1

REPORT INFORMATION
  Report Type: 
  Country: None (occurrence: None)
  Receive Date: 20050121
  Receipt Date: 20050121
  Transmission Date: 20050727
  Serious: Yes (Life-Threatening, Hospitalization, Disabling)
  Sender: FDA-Public Use
  Company Number: None

PATIENT
  Age: 24 Year
  Sex: Male
  Weight: 112 kg

DRUGS (2)
  1. HEPARIN [Suspect]
     Indication: CENTRAL VENOUS CATHETERISATION
     Dosage: 300 UNITS/3 BID + PRN INTRAVENOUS
     Route: 042
     Dates: start: 20040926, end: 20041008
  2. ENOXAPARIN  1 MG/KG  -110 MG-   AVENTIS [Suspect]
     Indication: THROMBOSIS
     Dosage: 110 MG   Q 12 HOURS SUBCUTANEOUS
     Route: 059
     Dates: start: 20041006, end: 20041013

REACTIONS (21)
  - ABDOMINAL DISTENSION [None]
  - ANTIBODY TEST POSITIVE [None]
  - COMPARTMENT SYNDROME [None]
  - CONTUSION [None]
  - CYANOSIS [None]
  - DERMATITIS BULLOUS [None]
  - FOOT AMPUTATION [None]
  - GANGRENE [None]
  - HAEMORRHAGE [None]
  - HAND AMPUTATION [None]
  - HEPARIN-INDUCED THROMBOCYTOPENIA TEST [None]
  - INTRACRANIAL PRESSURE INCREASED [None]
  - LIVEDO RETICULARIS [None]
  - NECROSIS [None]
  - OEDEMA PERIPHERAL [None]
  - PHLEBOTHROMBOSIS [None]
  - PROCEDURAL COMPLICATION [None]
  - PUPIL FIXED [None]
  - RADIAL PULSE ABNORMAL [None]
  - SUBCLAVIAN VEIN THROMBOSIS [None]
  - TOE AMPUTATION [None]
